FAERS Safety Report 9748503 (Version 1)
Quarter: 2013Q4

REPORT INFORMATION
  Report Type: Spontaneous
  Country: US (occurrence: None)
  Receive Date: 20131209
  Receipt Date: 20131209
  Transmission Date: 20140711
  Serious: Yes (Hospitalization)
  Sender: FDA-Public Use
  Company Number: MAC2013000747

PATIENT
  Age: 77 Year
  Sex: Female
  Weight: 84 kg

DRUGS (8)
  1. LEVOFLOXACIN [Suspect]
     Indication: ANTIBIOTIC THERAPY
     Route: 042
  2. METRONIDAZOLE [Suspect]
     Indication: ANTIBIOTIC THERAPY
     Route: 042
  3. ALLOPURINOL [Concomitant]
  4. DILTIAZEM CD [Concomitant]
  5. FAMOTIDINE [Concomitant]
  6. FUROSEMIDE [Concomitant]
  7. LEVOTHYROXINE [Concomitant]
  8. PAROXETINE [Concomitant]

REACTIONS (2)
  - Dyskinesia [None]
  - Muscle contracture [None]
